FAERS Safety Report 21224117 (Version 1)
Quarter: 2022Q3

REPORT INFORMATION
  Report Type: Spontaneous
  Country: US (occurrence: US)
  Receive Date: 20220817
  Receipt Date: 20220817
  Transmission Date: 20221026
  Serious: Yes (Other)
  Sender: FDA-Public Use
  Company Number: US-BRISTOL-MYERS SQUIBB COMPANY-2022-086602

PATIENT
  Age: 74 Year
  Sex: Male
  Weight: 82.4 kg

DRUGS (1)
  1. ABECMA [Suspect]
     Active Substance: IDECABTAGENE VICLEUCEL
     Indication: Plasma cell myeloma
     Dosage: DOSE : UNAVAILABLE;     FREQ : UNAVAILABLE
     Route: 042
     Dates: start: 20220518

REACTIONS (4)
  - Cytokine release syndrome [Unknown]
  - Fatigue [Unknown]
  - Diarrhoea [Unknown]
  - Hypervolaemia [Unknown]

NARRATIVE: CASE EVENT DATE: 20220519
